FAERS Safety Report 5859582-5 (Version None)
Quarter: 2008Q3

REPORT INFORMATION
  Report Type: 
  Country: None (occurrence: None)
  Receive Date: 20080827
  Receipt Date: 20080825
  Transmission Date: 20090109
  Serious: Yes (Hospitalization)
  Sender: FDA-Public Use
  Company Number: D0058294A

PATIENT
  Age: 2 Year
  Sex: Male
  Weight: 16 kg

DRUGS (1)
  1. VIANI [Suspect]
     Dosage: 5PUFF SINGLE DOSE
     Route: 055

REACTIONS (2)
  - ACCIDENTAL OVERDOSE [None]
  - TACHYCARDIA [None]
